FAERS Safety Report 7229432-3 (Version None)
Quarter: 2011Q1

REPORT INFORMATION
  Report Type: 
  Country: None (occurrence: None)
  Receive Date: 20110117
  Receipt Date: 20110112
  Transmission Date: 20110831
  Serious: Yes (Life-Threatening)
  Sender: FDA-Public Use
  Company Number: B0691767A

PATIENT
  Age: 34 Year
  Sex: Female
  Weight: 42 kg

DRUGS (5)
  1. ZOMETA [Concomitant]
     Indication: BREAST CANCER
     Dosage: 4MG PER DAY
     Route: 042
  2. LUPRON [Concomitant]
     Indication: BREAST CANCER
     Dosage: 7.5MG PER DAY
     Route: 058
     Dates: start: 20080101
  3. HERCEPTIN [Concomitant]
     Indication: BREAST CANCER
     Dosage: 260MG PER DAY
     Route: 042
     Dates: start: 20080101
  4. EXEMESTANE [Concomitant]
     Indication: BREAST CANCER
     Dosage: 25MG PER DAY
     Route: 048
  5. TYKERB [Suspect]
     Indication: BREAST CANCER
     Dosage: 1000MG PER DAY
     Route: 065
     Dates: start: 20091101

REACTIONS (1)
  - NEUTROPENIA [None]
